FAERS Safety Report 5197336-6 (Version None)
Quarter: 2006Q4

REPORT INFORMATION
  Report Type: 
  Country: None (occurrence: None)
  Receive Date: 20061228
  Receipt Date: 20061205
  Transmission Date: 20070319
  Serious: Yes (Other)
  Sender: FDA-Public Use
  Company Number: 2006BI017885

PATIENT
  Age: 41 Year
  Sex: Female
  Weight: 61 kg

DRUGS (3)
  1. AVONEX [Suspect]
     Indication: MULTIPLE SCLEROSIS
     Dosage: 30 UG; QW; IM
     Route: 030
     Dates: start: 20060807
  2. MITOXANTRONE [Concomitant]
  3. CARBAMAZEPINE [Concomitant]

REACTIONS (2)
  - HYPERSENSITIVITY [None]
  - STEVENS-JOHNSON SYNDROME [None]
